FAERS Safety Report 16957795 (Version 3)
Quarter: 2020Q1

REPORT INFORMATION
  Report Type: Spontaneous
  Country: US (occurrence: US)
  Receive Date: 20191024
  Receipt Date: 20200224
  Transmission Date: 20200409
  Serious: No
  Sender: FDA-Public Use
  Company Number: US-SA-2019SA290357

PATIENT
  Age: 61 Year
  Sex: Female
  Weight: 117.01 kg

DRUGS (25)
  1. TOBI [Concomitant]
     Active Substance: TOBRAMYCIN
  2. SPIRIVA [Concomitant]
     Active Substance: TIOTROPIUM BROMIDE MONOHYDRATE
  3. DIOVAN [Concomitant]
     Active Substance: VALSARTAN
  4. DUPIXENT [Suspect]
     Active Substance: DUPILUMAB
     Indication: HYPOGAMMAGLOBULINAEMIA
  5. CALCIUM CITRATE WITH VITAMIN D [Concomitant]
     Active Substance: CALCIUM CITRATE\VITAMIN D
  6. BENEFIBER [Concomitant]
     Active Substance: STARCH, WHEAT
  7. PROAIR HFA [Concomitant]
     Active Substance: ALBUTEROL SULFATE
  8. DUPIXENT [Suspect]
     Active Substance: DUPILUMAB
     Indication: ASTHMA
     Dosage: 300 MG, QOW
     Route: 058
  9. GLUCOSAMINE + CHONDROITIN [CHONDROITIN SULFATE;GLUCOSAMINE HYDROCHLORI [Concomitant]
  10. ADVAIR HFA [Concomitant]
     Active Substance: FLUTICASONE PROPIONATE\SALMETEROL XINAFOATE
  11. SYNTHROID [Concomitant]
     Active Substance: LEVOTHYROXINE SODIUM
  12. ALLEGRA [Concomitant]
     Active Substance: FEXOFENADINE HYDROCHLORIDE
  13. CELEXA [CELECOXIB] [Concomitant]
     Active Substance: CELECOXIB
  14. ACIDOPHILUS [Concomitant]
     Active Substance: LACTOBACILLUS ACIDOPHILUS
  15. ASPIR 81 [Concomitant]
     Active Substance: ASPIRIN
  16. TUMS [Concomitant]
     Active Substance: CALCIUM CARBONATE
  17. PREDNISONE. [Concomitant]
     Active Substance: PREDNISONE
  18. ULTRACET [Concomitant]
     Active Substance: ACETAMINOPHEN\TRAMADOL HYDROCHLORIDE
  19. MULTI VIT [Concomitant]
     Active Substance: VITAMINS
  20. ALBUTEROL [SALBUTAMOL] [Concomitant]
     Active Substance: ALBUTEROL
  21. GAMMAGARD [Concomitant]
     Active Substance: HUMAN IMMUNOGLOBULIN G
  22. FUROSEMIDE. [Concomitant]
     Active Substance: FUROSEMIDE
  23. NEXIUM [Concomitant]
     Active Substance: ESOMEPRAZOLE MAGNESIUM
  24. DUPIXENT [Suspect]
     Active Substance: DUPILUMAB
     Indication: HYPOGAMMAGLOBULINAEMIA
  25. SINGULAIR [Concomitant]
     Active Substance: MONTELUKAST SODIUM

REACTIONS (3)
  - Candida infection [Unknown]
  - Cyst [Unknown]
  - Infection [Unknown]
